FAERS Safety Report 4730007-6 (Version None)
Quarter: 2005Q3

REPORT INFORMATION
  Report Type: 
  Country: None (occurrence: None)
  Receive Date: 20050728
  Receipt Date: 20050719
  Transmission Date: 20060218
  Serious: Yes (Other)
  Sender: FDA-Public Use
  Company Number: 2005S1000223

PATIENT
  Age: 33 Year
  Sex: Male
  Weight: 50 kg

DRUGS (2)
  1. ACITRETIN (ACITRETIN) (25 MG) [Suspect]
     Indication: PUSTULAR PSORIASIS
     Dosage: 25 MG; QD; PO
     Route: 048
     Dates: start: 20050101, end: 20050301
  2. ACITRETIN (ACITRETIN) (25 MG) [Suspect]
     Indication: PUSTULAR PSORIASIS
     Dosage: 25 MG; QD; PO
     Route: 048
     Dates: start: 20050301

REACTIONS (1)
  - DEEP VEIN THROMBOSIS [None]
